FAERS Safety Report 9178777 (Version 6)
Quarter: 2016Q1

REPORT INFORMATION
  Report Type: Spontaneous
  Country: US (occurrence: US)
  Receive Date: 20121029
  Receipt Date: 20160108
  Transmission Date: 20160526
  Serious: Yes (Hospitalization, Disabling, Other)
  Sender: FDA-Public Use
  Company Number: US-009507513-1210USA009568

PATIENT
  Sex: Female
  Weight: 79.37 kg

DRUGS (13)
  1. CELEBREX [Concomitant]
     Active Substance: CELECOXIB
     Indication: ARTHRALGIA
     Dosage: UNK
     Dates: start: 2005, end: 2010
  2. FOLIC ACID. [Concomitant]
     Active Substance: FOLIC ACID
     Indication: BLOOD DISORDER
     Dosage: UNK
     Dates: start: 2005, end: 2011
  3. ALENDRONATE SODIUM. [Suspect]
     Active Substance: ALENDRONATE SODIUM
     Indication: OSTEOPOROSIS
     Dosage: 70 MG, UNK
     Route: 048
     Dates: start: 20080512, end: 201105
  4. VITAMIN D [Concomitant]
     Active Substance: CHOLECALCIFEROL
     Dosage: 2000 IU, QD
     Dates: start: 1998
  5. CITALOPRAM [Concomitant]
     Active Substance: CITALOPRAM HYDROBROMIDE
     Indication: ANXIETY
     Dosage: UNK
     Dates: start: 2007, end: 2011
  6. CORTICOSTEROIDS (UNSPECIFIED) [Concomitant]
     Active Substance: UNSPECIFIED INGREDIENT
     Dosage: UNK
     Dates: start: 2006, end: 2009
  7. FOSAMAX [Suspect]
     Active Substance: ALENDRONATE SODIUM
     Indication: OSTEOPENIA
  8. CALCIUM CITRATE [Concomitant]
     Active Substance: CALCIUM CITRATE
     Dosage: 500 MG, QD
     Dates: start: 1998
  9. SINGULAIR [Concomitant]
     Active Substance: MONTELUKAST SODIUM
     Indication: ASTHMA
     Dosage: 10 MG, QPM
     Route: 048
     Dates: start: 1995
  10. FOSAMAX [Suspect]
     Active Substance: ALENDRONATE SODIUM
     Indication: OSTEOPOROSIS
     Dosage: 70 MG, QW
     Route: 048
     Dates: start: 200703, end: 201012
  11. PREMARIN [Concomitant]
     Active Substance: ESTROGENS, CONJUGATED
     Indication: MIGRAINE
     Dosage: UNK
     Dates: start: 2005, end: 2007
  12. ALENDRONATE SODIUM. [Suspect]
     Active Substance: ALENDRONATE SODIUM
     Indication: OSTEOPENIA
     Dosage: 35 MG, UNK
     Route: 048
     Dates: start: 20110413, end: 20110522
  13. ADVAIR HFA [Concomitant]
     Active Substance: FLUTICASONE PROPIONATE\SALMETEROL XINAFOATE
     Indication: ASTHMA
     Dosage: UNK
     Dates: start: 1995

REACTIONS (65)
  - Metastases to lymph nodes [Unknown]
  - Device breakage [Unknown]
  - Migraine [Unknown]
  - Appendicectomy [Unknown]
  - Pneumonia [Unknown]
  - Thrombocytosis [Unknown]
  - Papillary thyroid cancer [Unknown]
  - Rotator cuff repair [Unknown]
  - Cyst [Unknown]
  - Adhesion [Unknown]
  - Back pain [Not Recovered/Not Resolved]
  - Post procedural hypothyroidism [Unknown]
  - Gastrooesophageal reflux disease [Unknown]
  - Open reduction of fracture [Unknown]
  - Bone graft [Unknown]
  - Myocardial infarction [Unknown]
  - Pulmonary embolism [Unknown]
  - Low turnover osteopathy [Unknown]
  - Calcium deficiency [Unknown]
  - Sinusitis [Unknown]
  - Leukocytosis [Not Recovered/Not Resolved]
  - Limb asymmetry [Unknown]
  - Medical device removal [Unknown]
  - Hyperparathyroidism primary [Unknown]
  - Joint dislocation [Unknown]
  - Internal fixation of fracture [Unknown]
  - Pulmonary embolism [Unknown]
  - Bone graft [Unknown]
  - Femur fracture [Unknown]
  - Weight increased [Unknown]
  - Ovarian failure [Unknown]
  - Cyst removal [Unknown]
  - Constipation [Unknown]
  - Fracture nonunion [Unknown]
  - Internal fixation of fracture [Unknown]
  - Joint arthroplasty [Unknown]
  - Tonsillectomy [Unknown]
  - Deep vein thrombosis [Unknown]
  - Osteoarthritis [Unknown]
  - Musculoskeletal pain [Unknown]
  - Oedema peripheral [Not Recovered/Not Resolved]
  - Bone graft [Unknown]
  - Femur fracture [Recovered/Resolved]
  - Vitamin D deficiency [Unknown]
  - Breast operation [Unknown]
  - Hyperglycaemia [Unknown]
  - Urinary tract infection [Not Recovered/Not Resolved]
  - Anaemia [Not Recovered/Not Resolved]
  - Adenoidectomy [Unknown]
  - Dyspnoea exertional [Unknown]
  - Medical device removal [Unknown]
  - Myocardial infarction [Unknown]
  - Thyroidectomy [Unknown]
  - Rotator cuff repair [Unknown]
  - Head injury [Unknown]
  - Hysterectomy [Unknown]
  - Corneal abrasion [Unknown]
  - Salpingo-oophorectomy bilateral [Unknown]
  - Haemorrhoid operation [Unknown]
  - Medical device removal [Unknown]
  - Rhinorrhoea [Unknown]
  - Parathyroid gland operation [Unknown]
  - Jaw operation [Unknown]
  - Medical device implantation [Unknown]
  - Lymphadenopathy [Unknown]

NARRATIVE: CASE EVENT DATE: 2007
